FAERS Safety Report 17479874 (Version 2)
Quarter: 2020Q2

REPORT INFORMATION
  Report Type: Report from Study
  Country: DE (occurrence: DE)
  Receive Date: 20200229
  Receipt Date: 20200403
  Transmission Date: 20200713
  Serious: Yes (Death, Other)
  Sender: FDA-Public Use
  Company Number: PHHY2018DE119726

PATIENT
  Age: 63 Year
  Sex: Male
  Weight: 108 kg

DRUGS (3)
  1. EXJADE [Suspect]
     Active Substance: DEFERASIROX
     Indication: IRON OVERLOAD
     Dosage: 2 DF, QD (6.6MG/KG BODYWEIGHT DAY=2 TABLETS A 360 MG)
     Route: 065
     Dates: start: 20180704, end: 20180815
  2. EXJADE [Suspect]
     Active Substance: DEFERASIROX
     Dosage: 2 DF, QD (13.3MG/KG BODYWEIGHT DAY=2 TABLETS A 360 MG)
     Route: 065
     Dates: start: 20180816, end: 20190515
  3. EXJADE [Suspect]
     Active Substance: DEFERASIROX
     Dosage: 2 DF, QD(6.67MG/KG BODYWEIGHT DAY=2 TABLETS A 360 MG)
     Route: 065
     Dates: start: 20190517

REACTIONS (5)
  - Concomitant disease aggravated [Not Recovered/Not Resolved]
  - Leukopenia [Not Recovered/Not Resolved]
  - Sepsis [Fatal]
  - Thrombocytopenia [Recovering/Resolving]
  - Pneumonia [Fatal]

NARRATIVE: CASE EVENT DATE: 20180814
